FAERS Safety Report 11078520 (Version 1)
Quarter: 2015Q2

REPORT INFORMATION
  Report Type: Report from Study
  Country: JP (occurrence: None)
  Receive Date: 20150428
  Receipt Date: 20150428
  Transmission Date: 20150821
  Serious: Yes (Hospitalization)
  Sender: FDA-Public Use
  Company Number: 2015BPN0012

PATIENT
  Age: 16 Year
  Sex: Female
  Weight: 40.1 kg

DRUGS (10)
  1. VEEN-D (ACETATED RINGER^S SOLUTION (WITH GLUCOSE)) [Concomitant]
  2. BUSCOPAN (SCOPOLAMINE BUTYLBROMIDE) [Concomitant]
  3. SOLDEM 3AG (MAINTENANCE MEDIUM) [Concomitant]
  4. CALONAL [Concomitant]
     Active Substance: ACETAMINOPHEN
  5. ANHIBA (ACETAMINOPHEN) [Concomitant]
  6. BUPHENYL GRANULES [Suspect]
     Active Substance: SODIUM PHENYLBUTYRATE
     Indication: ORNITHINE TRANSCARBAMOYLASE DEFICIENCY
     Dosage: 8 G (4 G 2/1 (1)-1 ORAL DAY)
     Route: 048
     Dates: start: 20130215, end: 20131015
  7. SOSEGON (PENTAZOCINE) [Concomitant]
     Active Substance: PENTAZOCINE
  8. ATARAX-P (HYDROXYZINE HYDROCHLORIDE) [Concomitant]
  9. ARGI-U (L-ARGININE_L-ARGININE HYDROCHLORIDE) [Concomitant]
  10. VOLTAREN [Concomitant]
     Active Substance: DICLOFENAC SODIUM

REACTIONS (3)
  - Calculus urinary [None]
  - Upper respiratory tract inflammation [None]
  - Protein urine present [None]

NARRATIVE: CASE EVENT DATE: 20140811
